FAERS Safety Report 6419422-2 (Version None)
Quarter: 2009Q4

REPORT INFORMATION
  Report Type: 
  Country: None (occurrence: None)
  Receive Date: 20091027
  Receipt Date: 20091015
  Transmission Date: 20100525
  Serious: Yes (Death, Hospitalization)
  Sender: FDA-Public Use
  Company Number: 89651

PATIENT
  Age: 45 Year
  Sex: Male

DRUGS (1)
  1. MITOMYCIN [Suspect]
     Indication: METASTATIC MALIGNANT MELANOMA
     Dosage: 15MG

REACTIONS (4)
  - AMMONIA INCREASED [None]
  - BILE DUCT NECROSIS [None]
  - HEPATIC FAILURE [None]
  - HEPATIC INFARCTION [None]
